FAERS Safety Report 4345881-5 (Version None)
Quarter: 2004Q2

REPORT INFORMATION
  Report Type: 
  Country: None (occurrence: None)
  Receive Date: 20040421
  Receipt Date: 20040408
  Transmission Date: 20050107
  Serious: Yes (Death)
  Sender: FDA-Public Use
  Company Number: A-CH2004-05505

PATIENT
  Age: 41 Year
  Sex: Male
  Weight: 60 kg

DRUGS (7)
  1. TRACLEER [Suspect]
     Indication: PULMONARY HYPERTENSION
     Dosage: 62.5; 125 MG, BID, ORAL
     Route: 048
     Dates: start: 20031125, end: 20031214
  2. TRACLEER [Suspect]
     Indication: PULMONARY HYPERTENSION
     Dosage: 62.5; 125 MG, BID, ORAL
     Route: 048
     Dates: start: 20031215, end: 20040203
  3. DOPAMINE HCL [Concomitant]
  4. DOBUTAMINE (DOBUTAMINE) [Concomitant]
  5. CEFOTAXIME SODIUM [Concomitant]
  6. ALBUMINE ^LFB^ (ALBUMIN HUMAN) [Concomitant]
  7. KANRENOL (POTASSIUM CANRENOATE) [Concomitant]

REACTIONS (5)
  - CARDIAC FAILURE CONGESTIVE [None]
  - HEPATIC FAILURE [None]
  - HEPATITIS C POSITIVE [None]
  - HEPATOCELLULAR DAMAGE [None]
  - RENAL FAILURE [None]
